FAERS Safety Report 12681961 (Version 2)
Quarter: 2016Q3

REPORT INFORMATION
  Report Type: Spontaneous
  Country: JP (occurrence: JP)
  Receive Date: 20160824
  Receipt Date: 20160927
  Transmission Date: 20161109
  Serious: Yes (Hospitalization, Other)
  Sender: FDA-Public Use
  Company Number: JP-BAYER-2016-161962

PATIENT
  Age: 81 Year
  Sex: Male
  Weight: 46.9 kg

DRUGS (6)
  1. ADALAT CC [Concomitant]
     Active Substance: NIFEDIPINE
     Indication: HYPERTENSION
     Dosage: DAILY DOSE 10 MG
     Route: 048
     Dates: start: 20140307
  2. INSULIN [Concomitant]
     Active Substance: INSULIN NOS
     Indication: DIABETES MELLITUS
     Dosage: UNK
  3. MEVALOTIN [Concomitant]
     Active Substance: PRAVASTATIN SODIUM
     Indication: HYPERLIPIDAEMIA
     Dosage: DAILY DOSE 5 MG
     Route: 048
  4. URIEF [Concomitant]
     Active Substance: SILODOSIN
     Indication: HYPERTONIC BLADDER
     Dosage: DAILY DOSE 8 MG
     Route: 048
     Dates: start: 20140205
  5. ADALAT CC [Concomitant]
     Active Substance: NIFEDIPINE
     Indication: HYPERTENSION
     Dosage: DAILY DOSE 40 MG
     Route: 048
     Dates: start: 20140124, end: 20140307
  6. BAYASPIRIN [Suspect]
     Active Substance: ASPIRIN
     Indication: ANGINA PECTORIS
     Dosage: DAILY DOSE 100 MG
     Route: 048
     Dates: start: 2011, end: 20140429

REACTIONS (3)
  - Intestinal obstruction [Recovered/Resolved]
  - Lymphadenopathy [None]
  - Small intestine ulcer [None]

NARRATIVE: CASE EVENT DATE: 2014
